FAERS Safety Report 8800350 (Version 3)
Quarter: 2012Q4

REPORT INFORMATION
  Report Type: 
  Country: US (occurrence: US)
  Receive Date: 20120921
  Receipt Date: 20121022
  Transmission Date: 20130627
  Serious: No
  Sender: FDA-Public Use
  Company Number: US-BIOGENIDEC-2012BI038148

PATIENT
  Age: 59 None
  Sex: Female

DRUGS (3)
  1. TYSABRI [Suspect]
     Indication: MULTIPLE SCLEROSIS
     Route: 042
     Dates: start: 20080410
  2. PROZAC [Concomitant]
     Indication: DEPRESSION
  3. WELLBUTRIN [Concomitant]
     Indication: DEPRESSION

REACTIONS (15)
  - Ligament rupture [Unknown]
  - Fall [Recovered/Resolved]
  - Laceration [Not Recovered/Not Resolved]
  - Meniscus injury [Not Recovered/Not Resolved]
  - Aspiration joint [Recovered/Resolved]
  - Nerve injury [Unknown]
  - Weight increased [Not Recovered/Not Resolved]
  - Contusion [Not Recovered/Not Resolved]
  - Depression [Not Recovered/Not Resolved]
  - Hypersomnia [Not Recovered/Not Resolved]
  - Neck pain [Unknown]
  - Sensation of heaviness [Not Recovered/Not Resolved]
  - Loss of control of legs [Recovered/Resolved]
  - Back pain [Unknown]
  - Pain in extremity [Unknown]
